FAERS Safety Report 25241289 (Version 2)
Quarter: 2025Q3

REPORT INFORMATION
  Report Type: Report from Study
  Country: US (occurrence: US)
  Receive Date: 20250425
  Receipt Date: 20250802
  Transmission Date: 20251020
  Serious: Yes (Death, Hospitalization, Other)
  Sender: ALEXION PHARMACEUTICALS
  Company Number: US-AstraZeneca-CH-00855695A

PATIENT
  Age: 76 Year
  Sex: Female

DRUGS (2)
  1. CAPIVASERTIB [Suspect]
     Active Substance: CAPIVASERTIB
     Indication: Breast cancer metastatic
     Route: 065
  2. PAXIL [Suspect]
     Active Substance: PAROXETINE HYDROCHLORIDE
     Route: 065

REACTIONS (4)
  - Respiratory failure [Fatal]
  - Metastases to peritoneum [Unknown]
  - Ascites [Unknown]
  - Neutropenia [Unknown]

NARRATIVE: CASE EVENT DATE: 20250330
